FAERS Safety Report 19534110 (Version 2)
Quarter: 2021Q4

REPORT INFORMATION
  Report Type: Spontaneous
  Country: US (occurrence: US)
  Receive Date: 20210714
  Receipt Date: 20211013
  Transmission Date: 20220303
  Serious: Yes (Life-Threatening, Hospitalization)
  Sender: FDA-Public Use
  Company Number: US-ORG100016242-2021000320

PATIENT
  Age: 66 Year
  Sex: Female
  Weight: 110.5 kg

DRUGS (4)
  1. EXPAREL [Suspect]
     Active Substance: BUPIVACAINE
     Route: 050
     Dates: start: 20210629, end: 20210629
  2. BUPIVACAINE [Suspect]
     Active Substance: BUPIVACAINE
     Dosage: NOT PROVIDED
     Route: 050
     Dates: start: 20210629, end: 20210629
  3. MIDAZOLAM [Concomitant]
     Active Substance: MIDAZOLAM
     Dosage: 2 MG
     Route: 042
  4. FENTANYL [Concomitant]
     Active Substance: FENTANYL
     Dosage: 100 MICROGRAMS
     Route: 042

REACTIONS (4)
  - Electrocardiogram ST segment elevation [Recovered/Resolved]
  - Incorrect route of product administration [Recovered/Resolved]
  - Unresponsive to stimuli [Recovered/Resolved]
  - Apnoea [Recovered/Resolved]

NARRATIVE: CASE EVENT DATE: 20210629
